FAERS Safety Report 14921562 (Version 2)
Quarter: 2018Q2

REPORT INFORMATION
  Report Type: Spontaneous
  Country: US (occurrence: US)
  Receive Date: 20180522
  Receipt Date: 20180531
  Transmission Date: 20180711
  Serious: Yes (Hospitalization)
  Sender: FDA-Public Use
  Company Number: US-BEH-2018090808

PATIENT
  Age: 87 Year
  Sex: Male
  Weight: 113.38 kg

DRUGS (35)
  1. ZEMAIRA [Suspect]
     Active Substance: .ALPHA.1-PROTEINASE INHIBITOR HUMAN
     Indication: ALPHA-1 ANTI-TRYPSIN DEFICIENCY
     Dosage: UNK
     Route: 042
  2. ZEMAIRA [Suspect]
     Active Substance: .ALPHA.1-PROTEINASE INHIBITOR HUMAN
     Dosage: 60 MG/KG, QW
     Route: 042
     Dates: start: 20100610
  3. PREDNISONE. [Concomitant]
     Active Substance: PREDNISONE
  4. DOCUSATE SODIUM. [Concomitant]
     Active Substance: DOCUSATE SODIUM
  5. THEOPHYLLINE [Concomitant]
     Active Substance: THEOPHYLLINE ANHYDROUS
  6. TRAMADOL. [Concomitant]
     Active Substance: TRAMADOL
  7. OXYGEN. [Concomitant]
     Active Substance: OXYGEN
  8. FLOMAX [Concomitant]
     Active Substance: TAMSULOSIN HYDROCHLORIDE
  9. COUMADIN [Concomitant]
     Active Substance: WARFARIN SODIUM
  10. ALLOPURINOL. [Concomitant]
     Active Substance: ALLOPURINOL
  11. RANITIDINE. [Concomitant]
     Active Substance: RANITIDINE
  12. ULORIC [Concomitant]
     Active Substance: FEBUXOSTAT
  13. COLCRYS [Concomitant]
     Active Substance: COLCHICINE
  14. FOLIC ACID. [Concomitant]
     Active Substance: FOLIC ACID
  15. CYANOCOBALAMIN. [Concomitant]
     Active Substance: CYANOCOBALAMIN
  16. ADVAIR HFA [Concomitant]
     Active Substance: FLUTICASONE PROPIONATE\SALMETEROL XINAFOATE
  17. MUCINEX [Concomitant]
     Active Substance: GUAIFENESIN
  18. LIPITOR [Concomitant]
     Active Substance: ATORVASTATIN CALCIUM
  19. MAGNESIUM OXIDE. [Concomitant]
     Active Substance: MAGNESIUM OXIDE
  20. VITAMIN D2 [Concomitant]
     Active Substance: ERGOCALCIFEROL
  21. OMEPRAZOLE. [Concomitant]
     Active Substance: OMEPRAZOLE
  22. ASPIRIN. [Concomitant]
     Active Substance: ASPIRIN
  23. MELOXICAM. [Concomitant]
     Active Substance: MELOXICAM
  24. GABAPENTIN. [Concomitant]
     Active Substance: GABAPENTIN
  25. AMIODARONE [Concomitant]
     Active Substance: AMIODARONE
  26. BETAMETHASONE. [Concomitant]
     Active Substance: BETAMETHASONE
  27. MULTIPLE VITAMINS [Concomitant]
     Active Substance: VITAMINS
  28. TUDORZA PRESSAIR [Concomitant]
     Active Substance: ACLIDINIUM BROMIDE
  29. DIPHENHYDRAMINE. [Concomitant]
     Active Substance: DIPHENHYDRAMINE
  30. ISOSORBIDE MONO HYDRALAZINE [Concomitant]
  31. SODIUM CHLORIDE. [Concomitant]
     Active Substance: SODIUM CHLORIDE
  32. EPINEPHRINE. [Concomitant]
     Active Substance: EPINEPHRINE
  33. LEVOTHYROXINE. [Concomitant]
     Active Substance: LEVOTHYROXINE
  34. BUMETANIDE. [Concomitant]
     Active Substance: BUMETANIDE
  35. MONTELUKAST [Concomitant]
     Active Substance: MONTELUKAST SODIUM

REACTIONS (4)
  - Fluid retention [Unknown]
  - Dyspnoea [Recovering/Resolving]
  - Abdominal pain upper [Unknown]
  - Pulmonary oedema [Recovering/Resolving]

NARRATIVE: CASE EVENT DATE: 2018
